FAERS Safety Report 8306692-9 (Version None)
Quarter: 2012Q2

REPORT INFORMATION
  Report Type: 
  Country: None (occurrence: None)
  Receive Date: 20120420
  Receipt Date: 20120418
  Transmission Date: 20120825
  Serious: Yes (Other)
  Sender: FDA-Public Use
  Company Number: ADR-2011-10932

PATIENT
  Sex: Female

DRUGS (4)
  1. HYDROMORPHONE HCL [Concomitant]
  2. PRIALT [Concomitant]
  3. LIORESAL [Suspect]
     Indication: MUSCLE SPASTICITY
     Dosage: MCG, DAILY, INTRATH
     Route: 037
  4. BACLOFEN [Concomitant]

REACTIONS (8)
  - MENOPAUSE [None]
  - PARAESTHESIA [None]
  - WEIGHT INCREASED [None]
  - TREMOR [None]
  - ABDOMINAL DISCOMFORT [None]
  - DRUG WITHDRAWAL SYNDROME [None]
  - PAIN [None]
  - FLUID RETENTION [None]
